FAERS Safety Report 9929864 (Version 1)
Quarter: 2014Q1

REPORT INFORMATION
  Report Type: Report from Study
  Country: US (occurrence: US)
  Receive Date: 20140227
  Receipt Date: 20140227
  Transmission Date: 20141002
  Serious: No
  Sender: FDA-Public Use
  Company Number: US-ABBVIE-12P-163-0996940-00

PATIENT
  Sex: Female

DRUGS (1)
  1. HUMIRA (ABBOTT) [Suspect]
     Indication: POLYARTHRITIS

REACTIONS (1)
  - Off label use [Not Recovered/Not Resolved]
